FAERS Safety Report 5298185-0 (Version None)
Quarter: 2007Q2

REPORT INFORMATION
  Report Type: 
  Country: None (occurrence: None)
  Receive Date: 20070416
  Receipt Date: 20070402
  Transmission Date: 20071010
  Serious: Yes (Hospitalization, Other)
  Sender: FDA-Public Use
  Company Number: US-SHR-US-2005-023983

PATIENT
  Age: 57 Year
  Sex: Female

DRUGS (15)
  1. BETASERON [Suspect]
     Dosage: 8 MIU, EVERY 2D
     Route: 058
     Dates: start: 20030720, end: 20050103
  2. BETASERON [Suspect]
     Dosage: 8 MIU, EVERY 2D
     Route: 058
     Dates: start: 20050128, end: 20051215
  3. BETASERON [Suspect]
     Dosage: 8 MIU, EVERY 2D
     Route: 058
     Dates: start: 20060830
  4. ATENOLOL [Concomitant]
  5. LEXAPRO [Concomitant]
  6. ASPIRIN [Concomitant]
  7. PREVACID [Concomitant]
  8. MOBIC [Concomitant]
  9. VITAMIN E [Concomitant]
  10. VITAMINE C [Concomitant]
  11. CALCIUM [Concomitant]
  12. POTASSIUM CHLORIDE [Concomitant]
  13. CLONAZEPAM [Concomitant]
  14. NITROTAB [Concomitant]
     Indication: HEADACHE
     Dosage: UNK TAB(S), AS REQ'D
  15. MORPHINE SULFATE [Concomitant]
     Dosage: UNK, AS REQ'D

REACTIONS (1)
  - BREAST CANCER STAGE II [None]
